FAERS Safety Report 23889809 (Version 1)
Quarter: 2024Q2

REPORT INFORMATION
  Report Type: Spontaneous
  Country: CN (occurrence: CN)
  Receive Date: 20240523
  Receipt Date: 20240523
  Transmission Date: 20240716
  Serious: Yes (Life-Threatening, Other)
  Sender: FDA-Public Use
  Company Number: CN-JNJFOC-20240551272

PATIENT
  Age: 74 Year
  Sex: Female
  Weight: 33 kg

DRUGS (5)
  1. DARZALEX [Suspect]
     Active Substance: DARATUMUMAB
     Indication: Amyloidosis
     Dosage: DAY 1, 8 15, AND 22
     Route: 041
     Dates: start: 20240430
  2. VELCADE [Suspect]
     Active Substance: BORTEZOMIB
     Indication: Gastrointestinal amyloidosis
     Dosage: DAY 1, 8, 15, AND 22
     Route: 065
     Dates: start: 20240430
  3. DEXAMETHASONE [Suspect]
     Active Substance: DEXAMETHASONE
     Indication: Gastrointestinal amyloidosis
     Dosage: DAY 1, 8, 15, AND 22
     Route: 065
     Dates: start: 20240430
  4. DIPHENHYDRAMINE HYDROCHLORIDE [Concomitant]
     Active Substance: DIPHENHYDRAMINE HYDROCHLORIDE
     Indication: Premedication
     Route: 030
     Dates: start: 20240430
  5. SODIUM CHLORIDE [Concomitant]
     Active Substance: SODIUM CHLORIDE
     Route: 042
     Dates: start: 20240430, end: 20240430

REACTIONS (3)
  - Anaphylactic reaction [Recovering/Resolving]
  - Infusion related reaction [Recovering/Resolving]
  - Off label use [Unknown]

NARRATIVE: CASE EVENT DATE: 20240430
